FAERS Safety Report 25225281 (Version 1)
Quarter: 2025Q2

REPORT INFORMATION
  Report Type: Spontaneous
  Country: CN (occurrence: CN)
  Receive Date: 20250422
  Receipt Date: 20250422
  Transmission Date: 20250716
  Serious: Yes (Other)
  Sender: SANOFI AVENTIS
  Company Number: CN-SA-2025SA112568

PATIENT
  Age: 81 Year
  Sex: Female
  Weight: 88.5 kg

DRUGS (1)
  1. CLOPIDOGREL BISULFATE [Suspect]
     Active Substance: CLOPIDOGREL BISULFATE
     Indication: Platelet aggregation abnormal
     Dosage: 75 MG, QD
     Route: 048
     Dates: start: 20250407, end: 20250412

REACTIONS (3)
  - Regurgitation [Recovering/Resolving]
  - Dyspepsia [Recovering/Resolving]
  - Abdominal discomfort [Recovered/Resolved]

NARRATIVE: CASE EVENT DATE: 20250408
